FAERS Safety Report 11998331 (Version 1)
Quarter: 2016Q1

REPORT INFORMATION
  Report Type: Spontaneous
  Country: BR (occurrence: BR)
  Receive Date: 20160203
  Receipt Date: 20160203
  Transmission Date: 20160526
  Serious: Yes (Hospitalization)
  Sender: FDA-Public Use
  Company Number: PHHY2016BR014591

PATIENT
  Sex: Female

DRUGS (1)
  1. VOLTAREN [Suspect]
     Active Substance: DICLOFENAC SODIUM
     Indication: PRODUCT USED FOR UNKNOWN INDICATION
     Dosage: (VOLTAREN 50 MG 20 TABLETS)
     Route: 065

REACTIONS (4)
  - Oesophageal varices haemorrhage [Unknown]
  - Haematemesis [Unknown]
  - Haematochezia [Unknown]
  - Platelet count decreased [Unknown]
